FAERS Safety Report 10755533 (Version 1)
Quarter: 2015Q1

REPORT INFORMATION
  Report Type: Spontaneous
  Country: FR (occurrence: FR)
  Receive Date: 20150202
  Receipt Date: 20150202
  Transmission Date: 20150721
  Serious: Yes (Death)
  Sender: FDA-Public Use
  Company Number: FR-GE HEALTHCARE MEDICAL DIAGNOSTICS-OMPQ-PR-1501S-0060

PATIENT
  Age: 79 Year
  Sex: Female

DRUGS (10)
  1. PRAVASTATIN [Concomitant]
     Active Substance: PRAVASTATIN\PRAVASTATIN SODIUM
  2. PARACETAMOL [Concomitant]
     Active Substance: ACETAMINOPHEN
     Indication: PAIN
  3. TRIMEBUTINE [Concomitant]
     Active Substance: TRIMEBUTINE
  4. OMNIPAQUE [Suspect]
     Active Substance: IOHEXOL
     Indication: PRODUCT USED FOR UNKNOWN INDICATION
     Route: 042
     Dates: start: 20140508, end: 20140508
  5. ILOMEDINE PERFUSIONS [Concomitant]
  6. CLOPIDOGREL [Concomitant]
     Active Substance: CLOPIDOGREL BISULFATE
  7. DILTIAZEM [Concomitant]
     Active Substance: DILTIAZEM
  8. INEXIUM [Concomitant]
     Active Substance: ESOMEPRAZOLE
  9. POLY-KARAYA [Concomitant]
  10. OMNIPAQUE [Suspect]
     Active Substance: IOHEXOL
     Indication: DIAGNOSTIC PROCEDURE

REACTIONS (5)
  - Clostridium difficile infection [None]
  - Sepsis [None]
  - Cardio-respiratory arrest [None]
  - Pulmonary embolism [None]
  - Renal failure [Fatal]

NARRATIVE: CASE EVENT DATE: 20140510
